FAERS Safety Report 21985632 (Version 10)
Quarter: 2023Q1

REPORT INFORMATION
  Report Type: Report from Study
  Country: BR (occurrence: BR)
  Receive Date: 20230213
  Receipt Date: 20230330
  Transmission Date: 20230418
  Serious: Yes (Disabling, Other)
  Sender: FDA-Public Use
  Company Number: BR-ABBVIE-22K-020-4502011-00

PATIENT
  Age: 26 Year
  Sex: Female
  Weight: 88 kg

DRUGS (8)
  1. RINVOQ [Suspect]
     Active Substance: UPADACITINIB
     Indication: Dermatitis atopic
     Dosage: LAST ADMIN DATE: 2022
     Route: 048
     Dates: start: 20220613
  2. RINVOQ [Suspect]
     Active Substance: UPADACITINIB
     Indication: Dermatitis atopic
     Dosage: END DATE WAS 2022
     Route: 048
     Dates: start: 20221022
  3. RINVOQ [Suspect]
     Active Substance: UPADACITINIB
     Indication: Dermatitis atopic
     Dosage: 30 MILLIGRAM
     Route: 048
     Dates: start: 20221222, end: 20230225
  4. RINVOQ [Suspect]
     Active Substance: UPADACITINIB
     Indication: Dermatitis atopic
     Dosage: 15 MILLIGRAM
     Route: 048
     Dates: start: 20230225
  5. BILASTINE [Concomitant]
     Active Substance: BILASTINE
     Indication: Face oedema
  6. ETHINYL ESTRADIOL\GESTODENE [Concomitant]
     Active Substance: ETHINYL ESTRADIOL\GESTODENE
     Indication: Contraception
     Dosage: TAMISA 30 GESTODENE 75 MG PLUS ETHINYLESTRADIOL 30 MG?1 TABLET?START DATE TEXT: SINCE SHE WAS 14 ...
     Route: 048
  7. PIOGLITAZONE HYDROCHLORIDE [Concomitant]
     Active Substance: PIOGLITAZONE HYDROCHLORIDE
     Indication: Insulin resistance
  8. HYDROXYZINE [Concomitant]
     Active Substance: HYDROXYZINE HYDROCHLORIDE
     Indication: Antiallergic therapy

REACTIONS (40)
  - Mobility decreased [Unknown]
  - Inflammation [Recovering/Resolving]
  - Dermatitis [Recovering/Resolving]
  - Feeling of despair [Unknown]
  - Eyelid pain [Unknown]
  - Ocular hyperaemia [Recovering/Resolving]
  - Swelling face [Unknown]
  - Face oedema [Recovering/Resolving]
  - Oedema peripheral [Unknown]
  - Mobility decreased [Recovered/Resolved]
  - Eye swelling [Recovering/Resolving]
  - Panic reaction [Unknown]
  - Eye disorder [Recovering/Resolving]
  - Erythema [Not Recovered/Not Resolved]
  - Weight increased [Unknown]
  - Pain [Unknown]
  - Erythema of eyelid [Not Recovered/Not Resolved]
  - Anxiety [Unknown]
  - Mass [Unknown]
  - Sensitive skin [Unknown]
  - Impaired quality of life [Unknown]
  - Trismus [Unknown]
  - Crying [Unknown]
  - Oral pustule [Unknown]
  - Stomatitis [Unknown]
  - Oral infection [Unknown]
  - Insomnia [Unknown]
  - Loss of personal independence in daily activities [Unknown]
  - Mental disorder [Unknown]
  - Skin lesion [Recovering/Resolving]
  - Hypophagia [Unknown]
  - Unevaluable event [Unknown]
  - Fear [Unknown]
  - Dermatitis atopic [Unknown]
  - Drug ineffective [Unknown]
  - Skin hypertrophy [Recovered/Resolved]
  - Fatigue [Unknown]
  - Pruritus [Unknown]
  - Pruritus [Recovered/Resolved]
  - Skin exfoliation [Unknown]

NARRATIVE: CASE EVENT DATE: 20220805
